FAERS Safety Report 6301651-X (Version None)
Quarter: 2009Q3

REPORT INFORMATION
  Report Type: 
  Country: None (occurrence: None)
  Receive Date: 20090807
  Receipt Date: 20090728
  Transmission Date: 20100115
  Serious: Yes (Other)
  Sender: FDA-Public Use
  Company Number: PHHY2009US31848

PATIENT
  Age: 64 Year
  Sex: Male

DRUGS (3)
  1. PROLEUKIN [Suspect]
     Indication: METASTATIC RENAL CELL CARCINOMA
     Dosage: 18 X10^6 IU/M^2 CONTINUOUS INFUSION FOR 120 HOURS, DAYS 1 AND 14, AND THREE MAINTENANCE CYCLE WEEKS
  2. INTERFERON ALFA-2A [Suspect]
     Indication: METASTATIC RENAL CELL CARCINOMA
     Dosage: 6 MIU EVERY OTHER DAY
     Route: 058
  3. VACCINES [Concomitant]
     Indication: METASTATIC RENAL CELL CARCINOMA
     Dosage: 1 ? 10^7 CELLS/1 ML LACTATED RINGER'S SOLUTION

REACTIONS (11)
  - BUNDLE BRANCH BLOCK RIGHT [None]
  - CARDIOMYOPATHY [None]
  - DERMATITIS [None]
  - HYPERGLYCAEMIA [None]
  - HYPOPHOSPHATAEMIA [None]
  - NAUSEA [None]
  - NEPHRITIS [None]
  - OEDEMA [None]
  - PULMONARY EMBOLISM [None]
  - SOMNOLENCE [None]
  - THROMBOCYTOPENIA [None]
